FAERS Safety Report 8367935-9 (Version None)
Quarter: 2012Q2

REPORT INFORMATION
  Report Type: 
  Country: None (occurrence: None)
  Receive Date: 20120517
  Receipt Date: 20120515
  Transmission Date: 20120825
  Serious: Yes (Hospitalization)
  Sender: FDA-Public Use
  Company Number: DE-ROCHE-1060654

PATIENT
  Sex: Male
  Weight: 67 kg

DRUGS (7)
  1. TORSEMIDE [Concomitant]
  2. AVASTIN [Suspect]
     Indication: COLORECTAL CANCER METASTATIC
     Dosage: LAST DOSE PRIOR TO SAE: 26/MAR/2012
     Route: 042
     Dates: start: 20111006
  3. AVASTIN [Suspect]
     Route: 042
     Dates: start: 20120423
  4. AMLODIPINE [Concomitant]
  5. METFORMIN HCL [Concomitant]
  6. RAMIPRIL [Concomitant]
  7. XIPAMID [Concomitant]

REACTIONS (3)
  - PNEUMONIA [None]
  - GENERAL PHYSICAL HEALTH DETERIORATION [None]
  - PNEUMONIA PRIMARY ATYPICAL [None]
